FAERS Safety Report 4387678-6 (Version None)
Quarter: 2004Q2

REPORT INFORMATION
  Report Type: 
  Country: None (occurrence: None)
  Receive Date: 20040629
  Receipt Date: 20040629
  Transmission Date: 20050107
  Serious: Yes (Life-Threatening)
  Sender: FDA-Public Use
  Company Number: None

PATIENT
  Sex: Female
  Weight: 57.27 kg

DRUGS (5)
  1. TAXOL [Suspect]
     Indication: PERITONEAL CARCINOMA
     Dosage: 175 MG /M2 295 MG
     Dates: start: 20040609
  2. DOXIL [Suspect]
     Indication: PERITONEAL CARCINOMA
     Dosage: 30 MG /M2 50 MG
     Dates: start: 20040609
  3. CARBOPLATIN [Suspect]
     Indication: PERITONEAL CARCINOMA
     Dosage: 5AUC 505 MG
     Dates: start: 20040609
  4. NEULASTA [Concomitant]
  5. EPOGEN [Concomitant]

REACTIONS (3)
  - ORAL CANDIDIASIS [None]
  - PANCYTOPENIA [None]
  - PYREXIA [None]
